FAERS Safety Report 11274593 (Version 4)
Quarter: 2015Q3

REPORT INFORMATION
  Report Type: Report from Study
  Country: US (occurrence: US)
  Receive Date: 20150715
  Receipt Date: 20150930
  Transmission Date: 20151125
  Serious: No
  Sender: FDA-Public Use
  Company Number: PHEH2015US013673

PATIENT
  Age: 64 Year
  Sex: Female
  Weight: 65.76 kg

DRUGS (2)
  1. GILENYA [Suspect]
     Active Substance: FINGOLIMOD HYDROCHLORIDE
     Indication: RELAPSING-REMITTING MULTIPLE SCLEROSIS
     Dosage: 0.5 MG, QD
     Route: 048
     Dates: start: 20150615
  2. BOTOX [Concomitant]
     Active Substance: ONABOTULINUMTOXINA
     Indication: MIGRAINE
     Route: 065

REACTIONS (18)
  - Fistula [Recovering/Resolving]
  - Cognitive disorder [Recovering/Resolving]
  - Dysgraphia [Not Recovered/Not Resolved]
  - Tremor [Not Recovered/Not Resolved]
  - Asthenia [Not Recovered/Not Resolved]
  - Blood pressure fluctuation [Recovering/Resolving]
  - Autonomic nervous system imbalance [Recovering/Resolving]
  - Eyelid oedema [Recovering/Resolving]
  - Herpes zoster [Not Recovered/Not Resolved]
  - Tooth infection [Recovering/Resolving]
  - Memory impairment [Not Recovered/Not Resolved]
  - Reading disorder [Not Recovered/Not Resolved]
  - Incoherent [Not Recovered/Not Resolved]
  - Pain [Not Recovered/Not Resolved]
  - Fatigue [Not Recovered/Not Resolved]
  - Decreased appetite [Not Recovered/Not Resolved]
  - Depression [Not Recovered/Not Resolved]
  - Neuralgia [Not Recovered/Not Resolved]

NARRATIVE: CASE EVENT DATE: 20150615
